FAERS Safety Report 9204070 (Version 1)
Quarter: 2013Q1

REPORT INFORMATION
  Report Type: Spontaneous
  Country: US (occurrence: None)
  Receive Date: 20130329
  Receipt Date: 20130329
  Transmission Date: 20140127
  Serious: No
  Sender: FDA-Public Use
  Company Number: None

PATIENT
  Age: 54 Year
  Sex: Male
  Weight: 109.68 kg

DRUGS (3)
  1. ROSUVASTATIN [Suspect]
     Route: 048
     Dates: start: 20110525, end: 20130327
  2. ROSUVASTATIN [Suspect]
     Route: 048
     Dates: start: 20110525, end: 20130327
  3. PLACEBO [Suspect]
     Dosage: 1 TABLET
     Route: 048
     Dates: start: 20110525, end: 20130327

REACTIONS (2)
  - Glycosylated haemoglobin increased [None]
  - Diabetes mellitus [None]
